FAERS Safety Report 9711656 (Version 3)
Quarter: 2014Q4

REPORT INFORMATION
  Report Type: Spontaneous
  Country: US (occurrence: US)
  Receive Date: 20131126
  Receipt Date: 20141205
  Transmission Date: 20150529
  Serious: No
  Sender: FDA-Public Use
  Company Number: US-BRISTOL-MYERS SQUIBB COMPANY-19084417

PATIENT
  Age: 63 Year
  Sex: Male
  Weight: 97.32 kg

DRUGS (3)
  1. SIMCOR [Concomitant]
     Active Substance: NIACIN\SIMVASTATIN
  2. BYDUREON [Suspect]
     Active Substance: EXENATIDE
     Indication: TYPE 2 DIABETES MELLITUS
     Dosage: LOT NO:AAA0574-EXP:JUN2015?ONGOING
     Route: 058
     Dates: start: 201301
  3. METFORMIN HCL XR TABS 500 MG [Concomitant]
     Active Substance: METFORMIN HYDROCHLORIDE
     Indication: TYPE 2 DIABETES MELLITUS

REACTIONS (7)
  - Injection site pain [Not Recovered/Not Resolved]
  - Injection site swelling [Recovering/Resolving]
  - Injection site mass [Unknown]
  - Weight decreased [Recovered/Resolved]
  - Product quality issue [Unknown]
  - Underdose [Unknown]
  - Injection site pain [Unknown]

NARRATIVE: CASE EVENT DATE: 20130115
